FAERS Safety Report 18276523 (Version 2)
Quarter: 2021Q3

REPORT INFORMATION
  Report Type: Spontaneous
  Country: US (occurrence: US)
  Receive Date: 20200917
  Receipt Date: 20210920
  Transmission Date: 20211014
  Serious: Yes (Other)
  Sender: FDA-Public Use
  Company Number: US-SA-2020SA252481

PATIENT
  Age: 74 Year
  Sex: Female

DRUGS (1)
  1. ZANTAC [Suspect]
     Active Substance: RANITIDINE HYDROCHLORIDE
     Indication: DYSPEPSIA
     Dosage: 150 MG, QD
     Dates: start: 198001, end: 201501

REACTIONS (4)
  - Lung carcinoma cell type unspecified stage III [Unknown]
  - Haematological malignancy [Unknown]
  - Non-Hodgkin^s lymphoma [Unknown]
  - Malignant splenic neoplasm [Unknown]

NARRATIVE: CASE EVENT DATE: 201901
